FAERS Safety Report 9162846 (Version 4)
Quarter: 2014Q2

REPORT INFORMATION
  Report Type: Spontaneous
  Country: US (occurrence: None)
  Receive Date: 20130222
  Receipt Date: 20140527
  Transmission Date: 20141212
  Serious: Yes (Other)
  Sender: FDA-Public Use
  Company Number: JPI-P-029912

PATIENT
  Age: 44 Year
  Sex: Female
  Weight: 68.2 kg

DRUGS (13)
  1. XYREM [Suspect]
     Indication: NARCOLEPSY
     Dosage: 6 GM (3 GM, 2 IN 1 D), ORAL
     Route: 048
     Dates: start: 200803
  2. XYREM [Suspect]
     Indication: NARCOLEPSY
     Dosage: 6 GM (3 GM, 2 IN 1 D), ORAL
     Route: 048
     Dates: start: 200803
  3. LAMOTRIGINE [Concomitant]
  4. ARMOUR THYROID [Concomitant]
  5. MELOXICAM [Concomitant]
  6. DICYCLOMINE [Concomitant]
  7. ESZOPICLONE [Concomitant]
  8. PANTOPRAZOLE [Concomitant]
  9. ONDANSETRON HYDROCHLORIDE [Concomitant]
  10. NORVASC [Suspect]
     Indication: PRODUCT USED FOR UNKNOWN INDICATION
  11. GRALISE [Suspect]
     Indication: PRODUCT USED FOR UNKNOWN INDICATION
  12. LYRICA (PREGABALIN) [Suspect]
     Indication: PRODUCT USED FOR UNKNOWN INDICATION
  13. BETA BLOCKER AGENTS [Suspect]
     Indication: PRODUCT USED FOR UNKNOWN INDICATION

REACTIONS (34)
  - Myoclonus [None]
  - Decreased appetite [None]
  - Blood pressure increased [None]
  - Heart rate increased [None]
  - Blood potassium decreased [None]
  - Headache [None]
  - Tremor [None]
  - Agitation [None]
  - Gastrointestinal infection [None]
  - Burning sensation [None]
  - Paraesthesia [None]
  - Feeling of body temperature change [None]
  - Sleep apnoea syndrome [None]
  - Sleep apnoea syndrome [None]
  - Hallucinations, mixed [None]
  - Palpitations [None]
  - Gastrointestinal surgery [None]
  - Essential tremor [None]
  - Raynaud^s phenomenon [None]
  - Dysuria [None]
  - Restlessness [None]
  - Cognitive disorder [None]
  - Vomiting [None]
  - Drug withdrawal syndrome [None]
  - Confusional state [None]
  - Hallucinations, mixed [None]
  - Campylobacter gastroenteritis [None]
  - Myoclonus [None]
  - Neuropathy peripheral [None]
  - Condition aggravated [None]
  - Fibromyalgia [None]
  - Hyperthyroidism [None]
  - Abdominal pain [None]
  - Dizziness [None]
